FAERS Safety Report 5303263-3 (Version None)
Quarter: 2007Q2

REPORT INFORMATION
  Report Type: 
  Country: None (occurrence: None)
  Receive Date: 20070420
  Receipt Date: 20070410
  Transmission Date: 20071010
  Serious: Yes (Hospitalization)
  Sender: FDA-Public Use
  Company Number: TW-ABBOTT-07P-153-0364701-00

PATIENT
  Age: 22 Year
  Sex: Male

DRUGS (3)
  1. CLARITHROMYCIN [Suspect]
     Indication: GASTRIC ULCER HELICOBACTER
     Route: 048
  2. METRONIDAZOLE [Suspect]
     Indication: GASTRIC ULCER HELICOBACTER
     Route: 048
  3. OMEPRAZOLE [Concomitant]
     Indication: GASTRIC ULCER HELICOBACTER
     Route: 048

REACTIONS (1)
  - CHEST PAIN [None]
